FAERS Safety Report 16613690 (Version 1)
Quarter: 2019Q3

REPORT INFORMATION
  Report Type: Spontaneous
  Country: US (occurrence: US)
  Receive Date: 20190722
  Receipt Date: 20190722
  Transmission Date: 20191004
  Serious: Yes (Disabling)
  Sender: FDA-Public Use
  Company Number: None

PATIENT
  Age: 24 Year
  Sex: Male
  Weight: 76.5 kg

DRUGS (1)
  1. PROPECIA [Suspect]
     Active Substance: FINASTERIDE
     Indication: ANDROGENETIC ALOPECIA
     Dosage: ?          QUANTITY:1 TABLET(S);?
     Route: 048
     Dates: start: 20190107, end: 20190425

REACTIONS (13)
  - Dry eye [None]
  - Sinusitis [None]
  - Dry mouth [None]
  - Head discomfort [None]
  - Migraine [None]
  - Visual impairment [None]
  - Fatigue [None]
  - Tension headache [None]
  - Cognitive disorder [None]
  - Altered visual depth perception [None]
  - Dizziness [None]
  - Altered state of consciousness [None]
  - Vision blurred [None]

NARRATIVE: CASE EVENT DATE: 20190520
